FAERS Safety Report 9445579 (Version 1)
Quarter: 2013Q3

REPORT INFORMATION
  Report Type: Spontaneous
  Country: US (occurrence: US)
  Receive Date: 20130807
  Receipt Date: 20130807
  Transmission Date: 20140515
  Serious: Yes (Other)
  Sender: FDA-Public Use
  Company Number: US-PFIZER INC-2013225290

PATIENT
  Age: 66 Year
  Sex: Female

DRUGS (5)
  1. SULFAMETHOXAZOLE/TRIMETHOPRIM [Suspect]
     Indication: NOCARDIOSIS
     Dosage: UNK
  2. LINEZOLID [Suspect]
     Indication: NOCARDIOSIS
     Dosage: UNK
  3. MEROPENEM [Suspect]
     Indication: NOCARDIOSIS
     Dosage: UNK
  4. PREDNISONE [Concomitant]
     Indication: SYSTEMIC LUPUS ERYTHEMATOSUS
     Dosage: 20 MG, 1X/DAY
  5. WARFARIN [Concomitant]
     Indication: ANTIPHOSPHOLIPID SYNDROME
     Dosage: UNK

REACTIONS (2)
  - Therapeutic response delayed [Unknown]
  - Thrombocytopenia [Unknown]
